FAERS Safety Report 7374486-7 (Version None)
Quarter: 2011Q1

REPORT INFORMATION
  Report Type: 
  Country: None (occurrence: None)
  Receive Date: 20110325
  Receipt Date: 20110110
  Transmission Date: 20110831
  Serious: No
  Sender: FDA-Public Use
  Company Number: US-MYLANLABS-2011S1000875

PATIENT
  Sex: Female

DRUGS (2)
  1. OXYCONTIN [Concomitant]
     Indication: PAIN
  2. FENTANYL-100 [Suspect]
     Indication: NECK PAIN
     Dosage: CHANGED Q72H
     Route: 062
     Dates: start: 20050101

REACTIONS (5)
  - HEADACHE [None]
  - DRUG EFFECT DECREASED [None]
  - NECK PAIN [None]
  - INCORRECT DRUG ADMINISTRATION DURATION [None]
  - DRUG WITHDRAWAL SYNDROME [None]
